FAERS Safety Report 6105276-0 (Version None)
Quarter: 2009Q1

REPORT INFORMATION
  Report Type: 
  Country: None (occurrence: None)
  Receive Date: 20090303
  Receipt Date: 20090218
  Transmission Date: 20090719
  Serious: Yes (Other)
  Sender: FDA-Public Use
  Company Number: 2009AP000576

PATIENT
  Age: 55 Year
  Sex: Male

DRUGS (9)
  1. CITALOPRAM HYDROBROMIDE [Suspect]
     Dosage: 20 MG QD;40 MG QD;60 MG QD
  2. SULFAMETHOXAZOLE AND TRIMETHOPRIM [Suspect]
     Indication: PANIC ATTACK
     Dosage: 1 DF BID
  3. RIFAMPIN [Suspect]
     Indication: OSTEOMYELITIS
     Dosage: 600 MG BID
  4. CORTISONE [Concomitant]
  5. BUPROPION HCL [Concomitant]
  6. LORAZEPAM [Concomitant]
  7. CLONAZEPAM [Concomitant]
  8. CLINDAMYCIN HCL [Concomitant]
  9. VANCOMYCIN [Concomitant]

REACTIONS (6)
  - ABDOMINAL DISCOMFORT [None]
  - CRYING [None]
  - DRUG EFFECT DECREASED [None]
  - DRUG INTERACTION [None]
  - PANIC ATTACK [None]
  - TREATMENT NONCOMPLIANCE [None]
